FAERS Safety Report 8392312 (Version 2)
Quarter: 2013Q3

REPORT INFORMATION
  Report Type: Report from Study
  Country: MX (occurrence: MX)
  Receive Date: 20120206
  Receipt Date: 20130820
  Transmission Date: 20140515
  Serious: Yes (Other)
  Sender: FDA-Public Use
  Company Number: PHHY2012MX006470

PATIENT
  Age: 66 Year
  Sex: Female

DRUGS (3)
  1. DIOVAN [Suspect]
     Indication: HYPERTENSION
     Dosage: 1 DF (320MG), DAILY
     Dates: start: 201112
  2. ADALAT OROS [Concomitant]
     Indication: BLOOD PRESSURE ABNORMAL
     Dosage: 2 DF, DAILY
  3. NORFENON [Concomitant]
     Indication: ARRHYTHMIA
     Dosage: 2 DF, UNK
     Dates: start: 201112

REACTIONS (7)
  - Arrhythmia [Not Recovered/Not Resolved]
  - Sense of oppression [Not Recovered/Not Resolved]
  - Blood glucose increased [Not Recovered/Not Resolved]
  - Hypokinesia [Not Recovered/Not Resolved]
  - Musculoskeletal stiffness [Not Recovered/Not Resolved]
  - Chest pain [Not Recovered/Not Resolved]
  - Blood pressure increased [Not Recovered/Not Resolved]
